FAERS Safety Report 5467204-0 (Version None)
Quarter: 2007Q3

REPORT INFORMATION
  Report Type: 
  Country: None (occurrence: None)
  Receive Date: 20070925
  Receipt Date: 20070913
  Transmission Date: 20080115
  Serious: Yes (Other)
  Sender: FDA-Public Use
  Company Number: US-ROCHE-489769

PATIENT
  Sex: Female
  Weight: 61.2 kg

DRUGS (13)
  1. BONIVA [Suspect]
     Indication: OSTEOPOROSIS
     Dosage: REPORTED AS MONTHLY
     Route: 048
     Dates: start: 20051027, end: 20070416
  2. ZOCOR [Concomitant]
     Route: 048
     Dates: start: 20051027
  3. FLONASE [Concomitant]
     Dosage: REPORTED AS 50MCG 2 PUFFS DAILY
     Route: 055
     Dates: start: 20051027
  4. HYDROCHLOROTHIAZIDE [Concomitant]
     Route: 048
     Dates: start: 20051027
  5. ELAVIL [Concomitant]
     Route: 048
     Dates: start: 20060202
  6. NORVASC [Concomitant]
     Indication: BLOOD PRESSURE
     Route: 048
     Dates: start: 20060504
  7. AMBIEN [Concomitant]
     Dosage: REPORTED AS AMBIEN CR AT BEDTIME
     Route: 048
     Dates: start: 20060817, end: 20070118
  8. AMBIEN [Concomitant]
     Dosage: REPORTED AT BEDTIME
     Route: 048
     Dates: start: 20070118
  9. NIACIN [Concomitant]
     Dates: start: 20061207
  10. LEXAPRO [Concomitant]
     Route: 048
     Dates: start: 20061207, end: 20070416
  11. NITROFURANTOIN [Concomitant]
     Route: 048
  12. CELEXA [Concomitant]
     Dates: end: 20061207
  13. DEPAKOTE [Concomitant]
     Dates: start: 20060706

REACTIONS (9)
  - ANGIOPATHY [None]
  - DEPRESSION [None]
  - ELECTROCARDIOGRAM ABNORMAL [None]
  - HEADACHE [None]
  - INTRACRANIAL ANEURYSM [None]
  - JOINT CREPITATION [None]
  - MOUTH ULCERATION [None]
  - SIALOMETAPLASIA [None]
  - SKIN LESION [None]
